FAERS Safety Report 7995737-1 (Version None)
Quarter: 2011Q4

REPORT INFORMATION
  Report Type: 
  Country: None (occurrence: None)
  Receive Date: 20111220
  Receipt Date: 20111218
  Transmission Date: 20120403
  Serious: No
  Sender: FDA-Public Use
  Company Number: US-BAYER-2011-121993

PATIENT

DRUGS (2)
  1. IBUPROFEN (ADVIL) [Concomitant]
     Route: 048
  2. ALEVE (CAPLET) [Suspect]
     Route: 048

REACTIONS (2)
  - MIGRAINE [None]
  - DYSPEPSIA [None]
